FAERS Safety Report 17802940 (Version 1)
Quarter: 2020Q2

REPORT INFORMATION
  Report Type: Spontaneous
  Country: US (occurrence: US)
  Receive Date: 20200519
  Receipt Date: 20200519
  Transmission Date: 20200714
  Serious: Yes (Life-Threatening)
  Sender: FDA-Public Use
  Company Number: None

PATIENT
  Age: 83 Year
  Sex: Male

DRUGS (1)
  1. CHLOROTHIAZIDE (CHLOROTHIAZIDE NA 500MG/VIL INJ) [Suspect]
     Active Substance: CHLOROTHIAZIDE
     Indication: CARDIAC FAILURE CONGESTIVE
     Route: 042
     Dates: start: 20200424, end: 20200425

REACTIONS (3)
  - Cardiac arrest [None]
  - Anaphylactic reaction [None]
  - Bradycardia [None]

NARRATIVE: CASE EVENT DATE: 20200425
